FAERS Safety Report 18822353 (Version 1)
Quarter: 2021Q1

REPORT INFORMATION
  Report Type: Spontaneous
  Country: FR (occurrence: FR)
  Receive Date: 20210202
  Receipt Date: 20210202
  Transmission Date: 20210419
  Serious: Yes (Hospitalization, Other)
  Sender: FDA-Public Use
  Company Number: FR-PFIZER INC-2021078342

PATIENT
  Age: 19 Year
  Sex: Male
  Weight: 88 kg

DRUGS (8)
  1. PROFENID [Concomitant]
     Active Substance: KETOPROFEN
     Dosage: UNK
  2. LYRICA [Suspect]
     Active Substance: PREGABALIN
     Indication: INTERVERTEBRAL DISC DISORDER
     Dosage: 225 MG, 1X/DAY
     Route: 048
     Dates: start: 20201227
  3. ZAMUDOL LP [Suspect]
     Active Substance: TRAMADOL HYDROCHLORIDE
     Indication: PAIN
     Dosage: 200 MG, 1X/DAY
     Route: 048
     Dates: start: 20201224, end: 20210106
  4. ZOLPIDEM [Concomitant]
     Active Substance: ZOLPIDEM TARTRATE
     Dosage: UNK
  5. ACTISKENAN [Suspect]
     Active Substance: MORPHINE SULFATE
     Indication: INTERVERTEBRAL DISC DISORDER
     Dosage: 40 MG, 1X/DAY
     Route: 048
     Dates: start: 20201129, end: 20210107
  6. HYDROXYZINE HYDROCHLORIDE. [Concomitant]
     Active Substance: HYDROXYZINE HYDROCHLORIDE
     Dosage: UNK
     Dates: start: 20201227, end: 20210104
  7. XATRAL [Concomitant]
     Active Substance: ALFUZOSIN
     Dosage: UNK
  8. SKENAN [Suspect]
     Active Substance: MORPHINE SULFATE
     Indication: INTERVERTEBRAL DISC DISORDER
     Dosage: 60 MG, 1X/DAY
     Route: 048
     Dates: start: 20201129, end: 20210108

REACTIONS (1)
  - Generalised tonic-clonic seizure [Recovered/Resolved]

NARRATIVE: CASE EVENT DATE: 20210106
